FAERS Safety Report 10058271 (Version 1)
Quarter: 2014Q2

REPORT INFORMATION
  Report Type: Report from Study
  Country: JP (occurrence: JP)
  Receive Date: 20140404
  Receipt Date: 20140404
  Transmission Date: 20141212
  Serious: Yes (Death)
  Sender: FDA-Public Use
  Company Number: JP-ROCHE-1375594

PATIENT
  Sex: 0

DRUGS (3)
  1. TRASTUZUMAB [Suspect]
     Indication: HER-2 POSITIVE GASTRIC CANCER
     Dosage: (COURSE 1, 8MG KGE1; COURSE 2 ONWARD, 6MG KGE1) INTRAVENOUSLY ON DAY 1 AND ORAL S-1 TWICE DAILY AT A
     Route: 042
  2. TRASTUZUMAB [Suspect]
     Route: 048
  3. CISPLATIN [Suspect]
     Indication: HER-2 POSITIVE GASTRIC CANCER
     Route: 065

REACTIONS (1)
  - Bone marrow failure [Fatal]
